FAERS Safety Report 14311145 (Version 1)
Quarter: 2017Q4

REPORT INFORMATION
  Report Type: Report from Study
  Country: GB (occurrence: GB)
  Receive Date: 20171221
  Receipt Date: 20171221
  Transmission Date: 20180321
  Serious: Yes (Other)
  Sender: FDA-Public Use
  Company Number: GB-INGENUS PHARMACEUTICALS NJ, LLC-ING201712-000693

PATIENT
  Age: 30 Year
  Sex: Female

DRUGS (1)
  1. CARISOPRODOL, ASPIRIN AND CODEINE PHOSPHATE [Suspect]
     Active Substance: ASPIRIN\CARISOPRODOL\CODEINE PHOSPHATE
     Indication: ANALGESIC THERAPY
     Dosage: CUMULATIVE DOSE 6 MG

REACTIONS (5)
  - Rash [Unknown]
  - Angioedema [Unknown]
  - Conjunctivitis [Unknown]
  - Pruritus generalised [Unknown]
  - Wheezing [Unknown]
